FAERS Safety Report 4385089-0 (Version None)
Quarter: 2004Q2

REPORT INFORMATION
  Report Type: 
  Country: None (occurrence: None)
  Receive Date: 20040624
  Receipt Date: 20040624
  Transmission Date: 20050107
  Serious: Yes (Other)
  Sender: FDA-Public Use
  Company Number: None

PATIENT
  Sex: Male

DRUGS (7)
  1. ZIPASIDONE 60 MG [Suspect]
     Indication: SCHIZOPHRENIA
     Dosage: 60 MG BID ORAL
     Route: 048
     Dates: start: 20040115, end: 20040311
  2. STELAZINE [Concomitant]
  3. TRAZODONE HCL [Concomitant]
  4. LORAZEPAM [Concomitant]
  5. BENZTROPINE MESYLATE [Concomitant]
  6. COMBIVENT [Concomitant]
  7. SIMVASTATIN [Concomitant]

REACTIONS (1)
  - RESTLESSNESS [None]
